FAERS Safety Report 12199565 (Version 1)
Quarter: 2016Q1

REPORT INFORMATION
  Report Type: Spontaneous
  Country: US (occurrence: US)
  Receive Date: 20160322
  Receipt Date: 20160322
  Transmission Date: 20160526
  Serious: Yes (Other)
  Sender: FDA-Public Use
  Company Number: US-NOVOPROD-484489

PATIENT
  Age: 78 Year
  Sex: Male

DRUGS (1)
  1. TRESIBA FLEXTOUCH U200 [Suspect]
     Active Substance: INSULIN DEGLUDEC
     Indication: PRODUCT USED FOR UNKNOWN INDICATION
     Dosage: 230 U, BID
     Route: 058

REACTIONS (2)
  - Transplant [Unknown]
  - Off label use [Not Recovered/Not Resolved]
